FAERS Safety Report 11552469 (Version 2)
Quarter: 2016Q2

REPORT INFORMATION
  Report Type: Spontaneous
  Country: US (occurrence: US)
  Receive Date: 20150925
  Receipt Date: 20160628
  Transmission Date: 20160815
  Serious: No
  Sender: FDA-Public Use
  Company Number: US-PFIZER INC-2015319341

PATIENT
  Age: 55 Year
  Sex: Female
  Weight: 85.26 kg

DRUGS (4)
  1. TOPAMAX [Concomitant]
     Active Substance: TOPIRAMATE
     Indication: PAIN
     Dosage: THREE 100MG TABLETS BY MOUTH AT BEDTIME
     Route: 048
  2. ELAM [Concomitant]
     Indication: PAIN
     Dosage: UNK, AS NEEDED
     Route: 061
  3. METHADONE [Concomitant]
     Active Substance: METHADONE HYDROCHLORIDE
     Indication: PAIN
     Dosage: 80 MG, DAILY(THREE TABLETS IN THE MORNING, THREE TABLETS AT NOON, AND TWO TABLETS AT NIGHT)
     Route: 048
  4. CHANTIX [Suspect]
     Active Substance: VARENICLINE TARTRATE
     Indication: SMOKING CESSATION THERAPY
     Dosage: 1 MG, 2X/DAY
     Route: 048
     Dates: start: 2012

REACTIONS (1)
  - Palpitations [Recovered/Resolved]
